FAERS Safety Report 25594483 (Version 1)
Quarter: 2025Q3

REPORT INFORMATION
  Report Type: Spontaneous
  Country: US (occurrence: US)
  Receive Date: 20250723
  Receipt Date: 20250723
  Transmission Date: 20251021
  Serious: Yes (Life-Threatening, Hospitalization)
  Sender: BAXTER
  Company Number: US-MLMSERVICE-20250710-PI575508-00175-1

PATIENT
  Age: 68 Year
  Sex: Female

DRUGS (2)
  1. HEPARIN SODIUM [Suspect]
     Active Substance: HEPARIN SODIUM
     Indication: Pulmonary embolism
     Route: 065
  2. OXYGEN [Concomitant]
     Active Substance: OXYGEN
     Indication: Hypoxia
     Route: 065

REACTIONS (1)
  - Haemoptysis [Unknown]
